FAERS Safety Report 10907957 (Version 1)
Quarter: 2015Q1

REPORT INFORMATION
  Report Type: Spontaneous
  Country: US (occurrence: US)
  Receive Date: 20150312
  Receipt Date: 20150312
  Transmission Date: 20150721
  Serious: No
  Sender: FDA-Public Use
  Company Number: US-INCYTE CORPORATION-2015IN000390

PATIENT
  Sex: Female

DRUGS (6)
  1. HYDREA [Concomitant]
     Active Substance: HYDROXYUREA
  2. RAMIPRIL. [Concomitant]
     Active Substance: RAMIPRIL
  3. JAKAFI [Suspect]
     Active Substance: RUXOLITINIB
     Dosage: 20 MG, BID
     Route: 048
     Dates: start: 20150117
  4. EXJADE [Concomitant]
     Active Substance: DEFERASIROX
     Indication: IRON OVERLOAD
  5. TOPROL XL [Concomitant]
     Active Substance: METOPROLOL SUCCINATE
  6. ASPIRIN. [Concomitant]
     Active Substance: ASPIRIN

REACTIONS (3)
  - Palpitations [Unknown]
  - Dizziness [Unknown]
  - Dyspnoea [Unknown]

NARRATIVE: CASE EVENT DATE: 2015
